FAERS Safety Report 23774330 (Version 2)
Quarter: 2024Q2

REPORT INFORMATION
  Report Type: Spontaneous
  Country: FR (occurrence: FR)
  Receive Date: 20240423
  Receipt Date: 20240429
  Transmission Date: 20240716
  Serious: Yes (Death, Other)
  Sender: FDA-Public Use
  Company Number: FR-CHEPLA-2024004304

PATIENT
  Age: 34 Year
  Sex: Male

DRUGS (21)
  1. ACETAMINOPHEN [Suspect]
     Active Substance: ACETAMINOPHEN
     Indication: Product used for unknown indication
     Dosage: UNK?DOSE FORM: UNKNOWN?DOSE ROUTE: UNKNOWN
  2. CLOTIAZEPAM [Suspect]
     Active Substance: CLOTIAZEPAM
     Indication: Product used for unknown indication
     Dosage: 3 DOSAGE FORM, 1/DAY?FOA: TABLET
  3. CLOTIAZEPAM [Suspect]
     Active Substance: CLOTIAZEPAM
     Dosage: 3 TABLETS PER DAY FOR A MONTH?FOA:TABLET ?ROA: UNKNOWN
  4. AMISULPRIDE [Suspect]
     Active Substance: AMISULPRIDE
     Indication: Schizophrenia
     Dosage: UNK
     Route: 065
  5. AMISULPRIDE [Suspect]
     Active Substance: AMISULPRIDE
     Dosage: ROA: UNKNOWN
  6. MIANSERIN HYDROCHLORIDE [Suspect]
     Active Substance: MIANSERIN HYDROCHLORIDE
     Indication: Depression
     Dosage: UNK
  7. MIANSERIN HYDROCHLORIDE [Suspect]
     Active Substance: MIANSERIN HYDROCHLORIDE
     Dosage: ROA: UNKNOWN
  8. SKENAN [Suspect]
     Active Substance: MORPHINE SULFATE
     Indication: Product used for unknown indication
     Dosage: UNK
  9. SKENAN [Suspect]
     Active Substance: MORPHINE SULFATE
     Dosage: ROA: UNKNOWN
  10. TRAMADOL HYDROCHLORIDE [Suspect]
     Active Substance: TRAMADOL HYDROCHLORIDE
     Indication: Product used for unknown indication
     Dosage: UNK
  11. QUETIAPINE FUMARATE [Suspect]
     Active Substance: QUETIAPINE FUMARATE
     Indication: Product used for unknown indication
     Dosage: 300 MILLIGRAM, 1/DAY
  12. FENTANYL [Suspect]
     Active Substance: FENTANYL\FENTANYL CITRATE
     Indication: Product used for unknown indication
     Dosage: UNK?FOA; TRANSDERMAL PATCH
  13. CODEINE [Suspect]
     Active Substance: CODEINE
     Indication: Product used for unknown indication
     Dosage: UNK
  14. CODEINE [Suspect]
     Active Substance: CODEINE
     Dosage: ROA; UNKNOWN
  15. VALIUM [Suspect]
     Active Substance: DIAZEPAM
     Indication: Product used for unknown indication
     Dosage: UNK
  16. VALIUM [Suspect]
     Active Substance: DIAZEPAM
     Dosage: ROA: UNKNOWN
  17. COCAINE [Suspect]
     Active Substance: COCAINE
     Indication: Product used for unknown indication
     Dosage: UNK
  18. COCAINE [Suspect]
     Active Substance: COCAINE
     Dosage: ROA: UNKNOWN
  19. FENTANYL [Suspect]
     Active Substance: FENTANYL\FENTANYL CITRATE
     Indication: Product used for unknown indication
     Dosage: ROA: UNKNOWN
  20. TRAMADOL [Suspect]
     Active Substance: TRAMADOL\TRAMADOL HYDROCHLORIDE
     Indication: Product used for unknown indication
     Dosage: ROA: UNKNOWN
  21. QUETIAPINE [Suspect]
     Active Substance: QUETIAPINE
     Indication: Product used for unknown indication
     Dosage: 1 TABLET AT NIGHT FOR ONE MONTH?ROA: UNKNOWN

REACTIONS (17)
  - Hyperglycaemia [Fatal]
  - Gallbladder injury [Fatal]
  - Myocarditis [Fatal]
  - Drug interaction [Fatal]
  - Cardio-respiratory arrest [Fatal]
  - Coma [Fatal]
  - Stenosis [Fatal]
  - Hepatic cytolysis [Fatal]
  - Toxicity to various agents [Fatal]
  - Cardiomyopathy [Fatal]
  - Monocytosis [Unknown]
  - Somnolence [Unknown]
  - Inflammation [Unknown]
  - Synovitis [Unknown]
  - Leukocytosis [Unknown]
  - Confusional state [Unknown]
  - Hypersomnia [Unknown]
